FAERS Safety Report 11788389 (Version 2)
Quarter: 2015Q4

REPORT INFORMATION
  Report Type: Spontaneous
  Country: IT (occurrence: IT)
  Receive Date: 20151201
  Receipt Date: 20151207
  Transmission Date: 20160305
  Serious: Yes (Other)
  Sender: FDA-Public Use
  Company Number: IT-ACCORD-035755

PATIENT
  Age: 43 Year
  Sex: Female

DRUGS (1)
  1. CISPLATIN. [Suspect]
     Active Substance: CISPLATIN
     Indication: OVARIAN NEOPLASM
     Route: 042
     Dates: start: 20151015, end: 20151015

REACTIONS (5)
  - Choking sensation [Recovering/Resolving]
  - Hypotension [Recovering/Resolving]
  - Hypersensitivity [Recovering/Resolving]
  - Tachycardia [Recovering/Resolving]
  - Paraesthesia oral [Recovering/Resolving]

NARRATIVE: CASE EVENT DATE: 20151015
